FAERS Safety Report 23743825 (Version 5)
Quarter: 2025Q3

REPORT INFORMATION
  Report Type: Report from Study
  Country: US (occurrence: US)
  Receive Date: 20240415
  Receipt Date: 20250812
  Transmission Date: 20251020
  Serious: Yes (Hospitalization, Other)
  Sender: ABBVIE
  Company Number: US-ABBVIE-5717739

PATIENT
  Age: 60 Year
  Sex: Male
  Weight: 115.21 kg

DRUGS (5)
  1. IMBRUVICA [Suspect]
     Active Substance: IBRUTINIB
     Indication: Chronic lymphocytic leukaemia
     Route: 048
     Dates: start: 202208, end: 202211
  2. IMBRUVICA [Suspect]
     Active Substance: IBRUTINIB
     Indication: Chronic lymphocytic leukaemia
     Route: 048
     Dates: start: 2024
  3. IMBRUVICA [Suspect]
     Active Substance: IBRUTINIB
     Indication: Chronic lymphocytic leukaemia
     Route: 048
     Dates: start: 202402
  4. FARXIGA [Concomitant]
     Active Substance: DAPAGLIFLOZIN PROPANEDIOL
     Indication: Product used for unknown indication
  5. DAPAGLIFLOZIN [Concomitant]
     Active Substance: DAPAGLIFLOZIN
     Indication: Product used for unknown indication

REACTIONS (15)
  - Illness [Recovered/Resolved]
  - Chronic obstructive pulmonary disease [Recovering/Resolving]
  - Neck pain [Not Recovered/Not Resolved]
  - Foot deformity [Recovering/Resolving]
  - White blood cell count decreased [Unknown]
  - White blood cell count increased [Unknown]
  - Illness [Unknown]
  - Prostatic disorder [Unknown]
  - COVID-19 [Recovered/Resolved]
  - Blood magnesium decreased [Recovered/Resolved]
  - Blood glucose increased [Unknown]
  - Dysuria [Recovered/Resolved]
  - Headache [Recovered/Resolved]
  - Muscle spasms [Recovering/Resolving]
  - Influenza [Unknown]

NARRATIVE: CASE EVENT DATE: 20220101
